FAERS Safety Report 13767449 (Version 1)
Quarter: 2017Q3

REPORT INFORMATION
  Report Type: Spontaneous
  Country: US (occurrence: US)
  Receive Date: 20170719
  Receipt Date: 20170719
  Transmission Date: 20171127
  Serious: Yes (Death, Other)
  Sender: FDA-Public Use
  Company Number: US-STRIDES ARCOLAB LIMITED-2016SP010299

PATIENT

DRUGS (3)
  1. MYCOPHENOLATE MOFETIL. [Suspect]
     Active Substance: MYCOPHENOLATE MOFETIL
     Indication: KIDNEY TRANSPLANT REJECTION
     Dosage: UNK
  2. PREDNISOLONE. [Suspect]
     Active Substance: PREDNISOLONE
     Indication: KIDNEY TRANSPLANT REJECTION
     Dosage: UNK
  3. TACROLIMUS. [Suspect]
     Active Substance: TACROLIMUS
     Indication: KIDNEY TRANSPLANT REJECTION
     Dosage: UNK

REACTIONS (10)
  - Speech disorder [Unknown]
  - Bacteraemia [Fatal]
  - Facial paralysis [Unknown]
  - Post transplant lymphoproliferative disorder [Unknown]
  - Confusional state [Unknown]
  - Amnesia [Unknown]
  - Vomiting [Unknown]
  - Staphylococcal infection [Fatal]
  - Plasma cell myeloma [Unknown]
  - Nausea [Unknown]
